FAERS Safety Report 5682818-0 (Version None)
Quarter: 2008Q1

REPORT INFORMATION
  Report Type: 
  Country: None (occurrence: None)
  Receive Date: 20080327
  Receipt Date: 20080318
  Transmission Date: 20080703
  Serious: Yes (Hospitalization, Other)
  Sender: FDA-Public Use
  Company Number: A0710799A

PATIENT
  Age: 72 Year
  Sex: Female
  Weight: 66 kg

DRUGS (9)
  1. IMITREX [Suspect]
     Indication: MIGRAINE
     Dosage: 6MG SINGLE DOSE
     Route: 030
     Dates: start: 20080219, end: 20080219
  2. VERAPAMIL [Concomitant]
  3. HYDROCHLOROTHIAZIDE [Concomitant]
  4. LEVOTHYROXINE SODIUM [Concomitant]
  5. BUTABARBITAL [Concomitant]
  6. HYDROXYZINE [Concomitant]
  7. SIMVASTATIN [Concomitant]
  8. NEXIUM [Concomitant]
  9. PROZAC [Concomitant]

REACTIONS (17)
  - ABDOMINAL PAIN [None]
  - ADNEXA UTERI MASS [None]
  - ANAEMIA [None]
  - ARTERIOSPASM CORONARY [None]
  - BLOOD CREATINE PHOSPHOKINASE MB INCREASED [None]
  - BLOOD GLUCOSE INCREASED [None]
  - CHEST PAIN [None]
  - ELECTROCARDIOGRAM ST SEGMENT ELEVATION [None]
  - HEADACHE [None]
  - HYPOTHYROIDISM [None]
  - MYALGIA [None]
  - MYOCARDIAL INFARCTION [None]
  - RED BLOOD CELL SEDIMENTATION RATE INCREASED [None]
  - SPLENIC LESION [None]
  - SPLENOMEGALY [None]
  - TROPONIN INCREASED [None]
  - WEIGHT DECREASED [None]
